FAERS Safety Report 8433429-5 (Version None)
Quarter: 2012Q2

REPORT INFORMATION
  Report Type: 
  Country: None (occurrence: None)
  Receive Date: 20120613
  Receipt Date: 20120604
  Transmission Date: 20120825
  Serious: Yes (Other)
  Sender: FDA-Public Use
  Company Number: CA-JNJFOC-20120601983

PATIENT
  Sex: Male
  Weight: 98 kg

DRUGS (3)
  1. REMICADE [Suspect]
     Indication: CROHN'S DISEASE
     Route: 042
     Dates: start: 20120302
  2. VITAMIN B-12 [Concomitant]
     Route: 030
  3. CELEXA [Concomitant]
     Route: 065

REACTIONS (2)
  - CROHN'S DISEASE [None]
  - SYNCOPE [None]
